FAERS Safety Report 7254447-9 (Version None)
Quarter: 2011Q1

REPORT INFORMATION
  Report Type: 
  Country: None (occurrence: None)
  Receive Date: 20110129
  Receipt Date: 20100419
  Transmission Date: 20110831
  Serious: No
  Sender: FDA-Public Use
  Company Number: US-ABBOTT-10P-163-0640560-00

PATIENT
  Sex: Female
  Weight: 61.744 kg

DRUGS (4)
  1. UNKNOWN MEDICATION [Concomitant]
     Indication: BLOOD PRESSURE
  2. UNKNOWN MEDICATIONS [Concomitant]
     Indication: BLOOD PRESSURE
  3. HUMIRA [Suspect]
     Indication: RHEUMATOID ARTHRITIS
     Route: 058
     Dates: start: 20100324
  4. TALWIN [Concomitant]
     Indication: PAIN

REACTIONS (1)
  - BLISTER [None]
